FAERS Safety Report 9928827 (Version 1)
Quarter: 2014Q1

REPORT INFORMATION
  Report Type: Spontaneous
  Country: FR (occurrence: FR)
  Receive Date: 20140227
  Receipt Date: 20140227
  Transmission Date: 20141002
  Serious: Yes (Other)
  Sender: FDA-Public Use
  Company Number: PHHY2014FR021394

PATIENT
  Age: 42 Year
  Sex: Female

DRUGS (5)
  1. METOPROLOL SANDOZ [Suspect]
     Indication: MIGRAINE
     Dosage: 1 DF, QD
     Route: 048
     Dates: start: 20130301, end: 20130809
  2. COOLMETEC [Suspect]
     Indication: HYPERTENSION
     Dosage: 1 DF, QD
     Route: 048
     Dates: start: 20130301
  3. NAFTIDROFURYL MYLAN [Suspect]
     Indication: RAYNAUD^S PHENOMENON
     Dosage: 2 DF, QD
     Route: 048
     Dates: start: 20130301
  4. DESOGESTREL [Concomitant]
     Indication: PRODUCT USED FOR UNKNOWN INDICATION
     Route: 065
  5. NUREFLEX [Concomitant]
     Indication: PRODUCT USED FOR UNKNOWN INDICATION
     Route: 065

REACTIONS (4)
  - Hallucination [Recovered/Resolved]
  - Somnambulism [Recovered/Resolved]
  - Wrist fracture [Recovered/Resolved]
  - Injury [Recovered/Resolved]
